FAERS Safety Report 9785444 (Version 1)
Quarter: 2013Q4

REPORT INFORMATION
  Report Type: Spontaneous
  Country: US (occurrence: None)
  Receive Date: 20131226
  Receipt Date: 20131226
  Transmission Date: 20140711
  Serious: No
  Sender: FDA-Public Use
  Company Number: None

PATIENT
  Age: 64 Year
  Sex: Female
  Weight: 54.43 kg

DRUGS (3)
  1. LIPITOR [Suspect]
  2. FISH OIL [Concomitant]
  3. CALCIUM [Concomitant]

REACTIONS (2)
  - Muscular weakness [None]
  - Muscular weakness [None]
